FAERS Safety Report 7562715-6 (Version None)
Quarter: 2011Q2

REPORT INFORMATION
  Report Type: 
  Country: None (occurrence: None)
  Receive Date: 20110615
  Receipt Date: 20110603
  Transmission Date: 20111010
  Serious: Yes (Hospitalization)
  Sender: FDA-Public Use
  Company Number: B0725482A

PATIENT
  Age: 42 Year
  Sex: Female

DRUGS (3)
  1. ZIDOVUDINE [Suspect]
     Indication: HIV INFECTION
  2. EPIVIR [Suspect]
     Indication: HIV INFECTION
  3. NEVIRAPINE [Suspect]
     Indication: HIV INFECTION

REACTIONS (5)
  - TUBERCULOSIS [None]
  - ARTHRALGIA [None]
  - IMMUNE RECONSTITUTION SYNDROME [None]
  - LYMPHADENITIS [None]
  - NAUSEA [None]
